FAERS Safety Report 6285506-5 (Version None)
Quarter: 2009Q3

REPORT INFORMATION
  Report Type: 
  Country: None (occurrence: None)
  Receive Date: 20090727
  Receipt Date: 20090326
  Transmission Date: 20100115
  Serious: Yes (Other)
  Sender: FDA-Public Use
  Company Number: PHHY2009FI11135

PATIENT
  Sex: Female

DRUGS (1)
  1. SANDOSTATIN LAR [Suspect]
     Dosage: INJECTION EVERY 4 WEEKS

REACTIONS (3)
  - INJECTION SITE INDURATION [None]
  - INJECTION SITE STREAKING [None]
  - SURGERY [None]
